FAERS Safety Report 18812440 (Version 1)
Quarter: 2021Q1

REPORT INFORMATION
  Report Type: Report from Study
  Country: US (occurrence: US)
  Receive Date: 20210130
  Receipt Date: 20210130
  Transmission Date: 20210419
  Serious: No
  Sender: FDA-Public Use
  Company Number: NVSC2021US017151

PATIENT
  Age: 58 Year
  Sex: Female

DRUGS (1)
  1. ENTRESTO [Suspect]
     Active Substance: SACUBITRIL\VALSARTAN
     Indication: PRODUCT USED FOR UNKNOWN INDICATION
     Dosage: 50 MG, BID (24.26 MG)
     Route: 048
     Dates: start: 2017

REACTIONS (12)
  - Asthma [Unknown]
  - Ear pain [Unknown]
  - Chest discomfort [Unknown]
  - Illness [Unknown]
  - Hypersensitivity [Unknown]
  - COVID-19 [Unknown]
  - Abdominal pain [Unknown]
  - Decreased appetite [Unknown]
  - Paranasal sinus discomfort [Unknown]
  - Muscular weakness [Unknown]
  - Dyspnoea [Unknown]
  - Headache [Unknown]

NARRATIVE: CASE EVENT DATE: 20200712
